FAERS Safety Report 4640660-3 (Version None)
Quarter: 2005Q2

REPORT INFORMATION
  Report Type: 
  Country: None (occurrence: None)
  Receive Date: 20050419
  Receipt Date: 20050411
  Transmission Date: 20051028
  Serious: Yes (Death, Hospitalization)
  Sender: FDA-Public Use
  Company Number: 200510575GDS

PATIENT
  Age: 81 Year
  Sex: Male

DRUGS (3)
  1. PROFLOX             (MOXIFLOXACIN) [Suspect]
     Indication: BRONCHITIS ACUTE
     Dosage: ORAL
     Route: 048
  2. ZINNAT [Concomitant]
  3. CEPHALOSPORIN [Concomitant]

REACTIONS (7)
  - CARDIAC DISORDER [None]
  - CARDIOPULMONARY FAILURE [None]
  - FEELING ABNORMAL [None]
  - NEUROLOGICAL SYMPTOM [None]
  - RENAL FAILURE ACUTE [None]
  - RESPIRATORY DISORDER [None]
  - RESPIRATORY TRACT INFECTION [None]
